FAERS Safety Report 6042091-0 (Version None)
Quarter: 2009Q1

REPORT INFORMATION
  Report Type: 
  Country: None (occurrence: None)
  Receive Date: 20090116
  Receipt Date: 20090115
  Transmission Date: 20090719
  Serious: Yes (Life-Threatening, Hospitalization)
  Sender: FDA-Public Use
  Company Number: CA-ASTRAZENECA-2009UW01287

PATIENT
  Age: 59 Year
  Sex: Female

DRUGS (3)
  1. CRESTOR [Suspect]
     Dosage: 10MG ONE EVERY ONE DAY
     Route: 048
  2. MICARDIS [Concomitant]
  3. NORVASC [Concomitant]

REACTIONS (3)
  - ABDOMINAL PAIN [None]
  - HEPATITIS [None]
  - LIVER FUNCTION TEST NORMAL [None]
